FAERS Safety Report 7200919-2 (Version None)
Quarter: 2010Q4

REPORT INFORMATION
  Report Type: 
  Country: None (occurrence: None)
  Receive Date: 20101228
  Receipt Date: 20101222
  Transmission Date: 20110411
  Serious: Yes (Death, Other)
  Sender: FDA-Public Use
  Company Number: BR-PFIZER INC-2010177511

PATIENT
  Age: 68 Year
  Sex: Male
  Weight: 48 kg

DRUGS (2)
  1. SUTENT [Suspect]
     Indication: PHAEOCHROMOCYTOMA
     Dosage: 12.5 MG, 1X/DAY
     Route: 048
     Dates: start: 20100301
  2. SUTENT [Suspect]
     Dosage: 50 MG, 1X/DAY
     Route: 048
     Dates: start: 20100701

REACTIONS (5)
  - DEATH [None]
  - DIABETES MELLITUS [None]
  - HYPOAESTHESIA [None]
  - MUSCLE SPASMS [None]
  - WEIGHT INCREASED [None]
